FAERS Safety Report 6524159-5 (Version None)
Quarter: 2009Q4

REPORT INFORMATION
  Report Type: 
  Country: None (occurrence: None)
  Receive Date: 20091230
  Receipt Date: 20091230
  Transmission Date: 20100525
  Serious: No
  Sender: FDA-Public Use
  Company Number: None

PATIENT
  Age: 42 Year
  Sex: Female
  Weight: 71.6683 kg

DRUGS (3)
  1. COLD REMEDY ORAL MIST [Suspect]
     Indication: NASOPHARYNGITIS
     Dosage: QID FOR 6 DAYS
     Dates: start: 20091101, end: 20091107
  2. LIPITOR [Concomitant]
  3. NIACIN [Concomitant]

REACTIONS (2)
  - DYSGEUSIA [None]
  - HYPOGEUSIA [None]
